FAERS Safety Report 6661133-2 (Version None)
Quarter: 2010Q1

REPORT INFORMATION
  Report Type: 
  Country: None (occurrence: None)
  Receive Date: 20100331
  Receipt Date: 20100323
  Transmission Date: 20100710
  Serious: Yes (Death)
  Sender: FDA-Public Use
  Company Number: NL-ROCHE-692693

PATIENT
  Sex: Male

DRUGS (7)
  1. CAPECITABINE [Suspect]
     Dosage: DATE OF LAST CYCLE 27 JAN 2010.
     Route: 048
     Dates: start: 20100113
  2. BEVACIZUMAB [Suspect]
     Route: 065
  3. OXALIPLATIN [Suspect]
     Dosage: LAS CYCLE RECEIVED ON 13 JANUARY 2010.
     Route: 042
     Dates: start: 20100113
  4. VERAPAMIL [Concomitant]
  5. ASCAL [Concomitant]
  6. LOPERAMIDE [Concomitant]
  7. PRIMPERAN INJ [Concomitant]

REACTIONS (4)
  - ASPIRATION [None]
  - GASTROINTESTINAL HAEMORRHAGE [None]
  - MUCOSAL INFLAMMATION [None]
  - RESPIRATORY FAILURE [None]
